FAERS Safety Report 4610967-4 (Version None)
Quarter: 2005Q1

REPORT INFORMATION
  Report Type: 
  Country: None (occurrence: None)
  Receive Date: 20050317
  Receipt Date: 20050307
  Transmission Date: 20050727
  Serious: Yes (Hospitalization)
  Sender: FDA-Public Use
  Company Number: FR-BRISTOL-MYERS SQUIBB COMPANY-12893962

PATIENT
  Age: 67 Year
  Sex: Female

DRUGS (3)
  1. ENDOXAN [Suspect]
     Indication: B-CELL LYMPHOMA
     Dosage: TX START: 15-FEB-2004
     Route: 042
     Dates: start: 20040515, end: 20040515
  2. FLUDARABINE PHOSPHATE [Suspect]
     Indication: B-CELL LYMPHOMA
     Dosage: TX START: 15-FEB-2004
     Route: 042
     Dates: start: 20040515, end: 20040515
  3. MABTHERA [Suspect]
     Indication: B-CELL LYMPHOMA
     Dosage: TX START: 15-JAN-2004 (ONCE WEEKLY X4 WEEKS), THEN MONTHLY FROM 15-FEB TO 15-MAY-2004
     Route: 042
     Dates: start: 20040515, end: 20040515

REACTIONS (2)
  - BONE MARROW DEPRESSION [None]
  - DYSPNOEA [None]
